FAERS Safety Report 8962470 (Version 1)
Quarter: 2012Q4

REPORT INFORMATION
  Report Type: Spontaneous
  Country: US (occurrence: None)
  Receive Date: 20121211
  Receipt Date: 20121211
  Transmission Date: 20130627
  Serious: Yes (Hospitalization)
  Sender: FDA-Public Use
  Company Number: None

PATIENT
  Age: 69 Year
  Sex: Female
  Weight: 63 kg

DRUGS (4)
  1. DECITABINE [Suspect]
     Indication: MDS
     Dosage: 0.2mg/kg 2x week
last dose 9/6, held since
  2. CIPRO [Concomitant]
  3. AMBIEN [Concomitant]
  4. TYLENOL [Concomitant]

REACTIONS (4)
  - Cellulitis [None]
  - Thyroid neoplasm [None]
  - Tooth extraction [None]
  - Bone lesion excision [None]
